FAERS Safety Report 7582292-3 (Version None)
Quarter: 2011Q2

REPORT INFORMATION
  Report Type: 
  Country: None (occurrence: None)
  Receive Date: 20110630
  Receipt Date: 20110613
  Transmission Date: 20111010
  Serious: Yes (Hospitalization, Other)
  Sender: FDA-Public Use
  Company Number: US-BAYER-2011-025660

PATIENT
  Age: 42 Year
  Sex: Female
  Weight: 77.098 kg

DRUGS (7)
  1. ROCEPHIN [Concomitant]
     Indication: CELLULITIS
     Dosage: 1 MG, UNK
     Route: 042
  2. LEVAQUIN [Concomitant]
     Dosage: DAILY DOSE 750 MG
     Dates: start: 20070604
  3. ZYRTEC [Concomitant]
     Dosage: DAILY DOSE 10 MG
     Route: 048
  4. YASMIN [Suspect]
     Indication: PRODUCT USED FOR UNKNOWN INDICATION
     Dosage: 1 TAB/DAILY
     Dates: start: 20061117, end: 20070603
  5. PERCOCET [Concomitant]
     Indication: PAIN
     Dosage: 2 PILLS
     Route: 048
  6. NSAID'S [Concomitant]
     Dosage: UNK
     Dates: start: 20000101
  7. HYDROCHLOROTHIAZIDE [Concomitant]
     Dosage: DAILY DOSE 12.5 MG

REACTIONS (2)
  - THROMBOPHLEBITIS SUPERFICIAL [None]
  - DEEP VEIN THROMBOSIS [None]
